FAERS Safety Report 18701254 (Version 1)
Quarter: 2021Q1

REPORT INFORMATION
  Report Type: Spontaneous
  Country: US (occurrence: US)
  Receive Date: 20210105
  Receipt Date: 20210105
  Transmission Date: 20210419
  Serious: Yes (Other)
  Sender: FDA-Public Use
  Company Number: None

PATIENT
  Age: 79 Year
  Sex: Female
  Weight: 86.6 kg

DRUGS (1)
  1. CASIRIVIMAB?IMDEVIMAB [Suspect]
     Active Substance: CASIRIVIMAB\IMDEVIMAB
     Indication: COVID-19
     Dates: start: 20201222, end: 20201222

REACTIONS (4)
  - Hypophagia [None]
  - Dyspnoea [None]
  - Intentional product use issue [None]
  - Asthenia [None]

NARRATIVE: CASE EVENT DATE: 20201230
